FAERS Safety Report 7507378-0 (Version None)
Quarter: 2011Q2

REPORT INFORMATION
  Report Type: 
  Country: None (occurrence: None)
  Receive Date: 20110526
  Receipt Date: 20110512
  Transmission Date: 20111010
  Serious: Yes (Other)
  Sender: FDA-Public Use
  Company Number: US-TYCO HEALTHCARE/MALLINCKRODT-T201101017

PATIENT
  Sex: Female

DRUGS (1)
  1. METHADOSE [Suspect]
     Indication: DRUG DEPENDENCE
     Dosage: MAINTENANCE DOSING OF GREATER THAN 100  MG/DAY
     Route: 048

REACTIONS (2)
  - PREMATURE LABOUR [None]
  - DRUG EXPOSURE DURING PREGNANCY [None]
